FAERS Safety Report 24080198 (Version 1)
Quarter: 2024Q3

REPORT INFORMATION
  Report Type: Spontaneous
  Country: US (occurrence: None)
  Receive Date: 20240711
  Receipt Date: 20240711
  Transmission Date: 20241017
  Serious: No
  Sender: Public
  Company Number: None

PATIENT
  Sex: Female

DRUGS (1)
  1. IBRANCE [Suspect]
     Active Substance: PALBOCICLIB
     Dosage: OTHER FREQUENCY : DAILYFOR21DAYS;?
     Route: 048
     Dates: start: 202302, end: 20240623

REACTIONS (3)
  - Fatigue [None]
  - White blood cell count decreased [None]
  - Therapy interrupted [None]
